FAERS Safety Report 25742508 (Version 2)
Quarter: 2025Q4

REPORT INFORMATION
  Report Type: Report from Study
  Country: JP (occurrence: JP)
  Receive Date: 20250829
  Receipt Date: 20251224
  Transmission Date: 20260118
  Serious: Yes (Hospitalization, Other)
  Sender: UCB
  Company Number: JP-UCBJ-CD202407116UCBPHAPROD

PATIENT
  Age: 9 Year
  Weight: 23 kg

DRUGS (7)
  1. FENFLURAMINE HYDROCHLORIDE [Suspect]
     Active Substance: FENFLURAMINE HYDROCHLORIDE
     Indication: Lennox-Gastaut syndrome
     Dosage: 0.024 MILLIGRAM/KILOGRAM, 2X/DAY (BID)
     Route: 061
  2. FENFLURAMINE HYDROCHLORIDE [Suspect]
     Active Substance: FENFLURAMINE HYDROCHLORIDE
     Dosage: 0.07 MILLIGRAM/KILOGRAM, 2X/DAY (BID)
     Route: 061
  3. FENFLURAMINE HYDROCHLORIDE [Suspect]
     Active Substance: FENFLURAMINE HYDROCHLORIDE
     Dosage: 0.045 MILLIGRAM/KILOGRAM, 2X/DAY (BID)
     Route: 061
  4. LEVETIRACETAM [Concomitant]
     Active Substance: LEVETIRACETAM
     Indication: Lennox-Gastaut syndrome
     Dosage: 650 MILLIGRAM, DAILY
     Route: 061
  5. ETHOSUXIMIDE [Concomitant]
     Active Substance: ETHOSUXIMIDE
     Indication: Lennox-Gastaut syndrome
     Dosage: 400 MILLIGRAM, ONCE DAILY (QD)
     Route: 061
  6. ZONISAMIDE [Concomitant]
     Active Substance: ZONISAMIDE
     Indication: Lennox-Gastaut syndrome
     Dosage: 187.5 MILLIGRAM, ONCE DAILY (QD)
     Route: 061
  7. DIAZEPAM [Concomitant]
     Active Substance: DIAZEPAM
     Indication: Product used for unknown indication
     Dosage: UNK

REACTIONS (8)
  - Seizure cluster [Unknown]
  - Epilepsy [Unknown]
  - Decreased appetite [Recovered/Resolved]
  - Dizziness [Recovered/Resolved]
  - Somnolence [Unknown]
  - Hyperhidrosis [Recovered/Resolved]
  - Prescribed underdose [Unknown]
  - Off label use [Unknown]
